FAERS Safety Report 10904178 (Version 1)
Quarter: 2015Q1

REPORT INFORMATION
  Report Type: Spontaneous
  Country: US (occurrence: None)
  Receive Date: 20150303
  Receipt Date: 20150303
  Transmission Date: 20150721
  Serious: Yes (Disabling)
  Sender: FDA-Public Use
  Company Number: None

PATIENT
  Age: 63 Year
  Sex: Female
  Weight: 65.77 kg

DRUGS (3)
  1. ZOLPIDEM [Suspect]
     Active Substance: ZOLPIDEM\ZOLPIDEM TARTRATE
     Indication: SLEEP DISORDER
     Dosage: 1
     Route: 048
     Dates: start: 20140428, end: 20140922
  2. FLUCONAZOLE. [Suspect]
     Active Substance: FLUCONAZOLE
     Indication: TONGUE DISCOLOURATION
     Dosage: 1
     Route: 048
     Dates: start: 20140828, end: 20140906
  3. FLUCONAZOLE. [Suspect]
     Active Substance: FLUCONAZOLE
     Indication: ORAL CANDIDIASIS
     Dosage: 1
     Route: 048
     Dates: start: 20140828, end: 20140906

REACTIONS (7)
  - Gastrointestinal disorder [None]
  - Eructation [None]
  - Abdominal pain upper [None]
  - Weight decreased [None]
  - Oral discomfort [None]
  - Anxiety disorder [None]
  - Decreased appetite [None]

NARRATIVE: CASE EVENT DATE: 20140428
